FAERS Safety Report 7122093-3 (Version None)
Quarter: 2010Q4

REPORT INFORMATION
  Report Type: 
  Country: None (occurrence: None)
  Receive Date: 20101124
  Receipt Date: 20101115
  Transmission Date: 20110411
  Serious: Yes (Other)
  Sender: FDA-Public Use
  Company Number: US-JNJFOC-20101106513

PATIENT
  Sex: Female
  Weight: 111.13 kg

DRUGS (11)
  1. STELARA [Suspect]
     Indication: PSORIATIC ARTHROPATHY
     Route: 058
  2. CYMBALTA [Concomitant]
     Route: 048
  3. FOLIC ACID [Concomitant]
     Route: 048
  4. LORAZEPAM [Concomitant]
     Route: 048
  5. METHOTREXATE [Concomitant]
     Route: 048
  6. MILK THISTLE [Concomitant]
     Route: 048
  7. PERCOCET [Concomitant]
     Route: 048
  8. PRASTERONE [Concomitant]
     Route: 048
  9. SYNTHROID [Concomitant]
     Route: 048
  10. TOPROL-XL [Concomitant]
     Route: 048
  11. VITAMIN D [Concomitant]
     Route: 048

REACTIONS (3)
  - ARTHRITIS [None]
  - PERICARDIAL EFFUSION [None]
  - PERICARDITIS [None]
